FAERS Safety Report 11512592 (Version 2)
Quarter: 2015Q3

REPORT INFORMATION
  Report Type: Spontaneous
  Country: BR (occurrence: BR)
  Receive Date: 20150916
  Receipt Date: 20150918
  Transmission Date: 20151125
  Serious: Yes (Other)
  Sender: FDA-Public Use
  Company Number: BR-ACTAVIS-2015-19494

PATIENT
  Age: 60 Year
  Sex: Female

DRUGS (6)
  1. CLOMIPRAMINE (UNKNOWN) [Suspect]
     Active Substance: CLOMIPRAMINE
     Indication: OSTEOARTHRITIS
  2. CLOMIPRAMINE (UNKNOWN) [Suspect]
     Active Substance: CLOMIPRAMINE
     Indication: FIBROMYALGIA
     Dosage: 25 MG, TID
     Route: 048
  3. NIMESULIDE (UNKNOWN) [Suspect]
     Active Substance: NIMESULIDE
     Indication: FIBROMYALGIA
     Dosage: 100 MG, BID
     Route: 048
  4. PARACETAMOL (UNKNOWN) [Suspect]
     Active Substance: ACETAMINOPHEN
     Indication: FIBROMYALGIA
     Dosage: 750 MG, QID
     Route: 048
  5. PARACETAMOL (UNKNOWN) [Suspect]
     Active Substance: ACETAMINOPHEN
     Indication: OSTEOARTHRITIS
  6. NIMESULIDE (UNKNOWN) [Suspect]
     Active Substance: NIMESULIDE
     Indication: OSTEOARTHRITIS

REACTIONS (1)
  - Necrolytic migratory erythema [Recovered/Resolved]
